FAERS Safety Report 18765553 (Version 6)
Quarter: 2021Q4

REPORT INFORMATION
  Report Type: Spontaneous
  Country: GB (occurrence: GB)
  Receive Date: 20210121
  Receipt Date: 20211103
  Transmission Date: 20220304
  Serious: Yes (Hospitalization)
  Sender: FDA-Public Use
  Company Number: GB-ROCHE-1753955

PATIENT
  Age: 40 Year
  Sex: Female

DRUGS (19)
  1. DOCETAXEL [Suspect]
     Active Substance: DOCETAXEL
     Indication: Breast cancer metastatic
     Dosage: THERAPY DISCONTINUED: PLANNED NUMBER OF CYCLES COMPLETED, UNIT DOSE : 110 MG, TIW
     Route: 042
     Dates: start: 20160526, end: 20160707
  2. DOCETAXEL [Suspect]
     Active Substance: DOCETAXEL
     Dosage: 140 MG, CYCLIC (ONCE IN 2 WEEKS)
     Route: 042
     Dates: start: 20160324, end: 20160526
  3. TAMOXIFEN [Suspect]
     Active Substance: TAMOXIFEN
     Indication: Breast cancer metastatic
     Dosage: UNK, QD
     Route: 048
     Dates: start: 201603
  4. PERTUZUMAB [Suspect]
     Active Substance: PERTUZUMAB
     Indication: Breast cancer metastatic
     Dosage: 420 MILLIGRAM, Q3W
     Route: 042
     Dates: start: 20160413
  5. PERTUZUMAB [Suspect]
     Active Substance: PERTUZUMAB
     Dosage: 840 MILLIGRAM DAILY; LOADING DOSE: PLANNED NUMBER OF CYCLES COMPLETED
     Route: 042
     Dates: start: 20160324, end: 20160324
  6. PERTUZUMAB [Suspect]
     Active Substance: PERTUZUMAB
     Dosage: 420 MILLIGRAM, Q3W
     Route: 042
  7. TRASTUZUMAB [Suspect]
     Active Substance: TRASTUZUMAB
     Indication: Breast cancer metastatic
     Dosage: 651 MILLIGRAM DAILY;  LOADING DOSEPLANNED NUMBER OF CYCLES COMPLETED
     Route: 041
     Dates: start: 20160323, end: 20160323
  8. TRASTUZUMAB [Suspect]
     Active Substance: TRASTUZUMAB
     Dosage: 483 MILLIGRAM, Q3W
     Route: 042
     Dates: start: 20160413
  9. CITALOPRAM [Concomitant]
     Active Substance: CITALOPRAM HYDROBROMIDE
     Indication: Thrombosis prophylaxis
     Dosage: 20 MILLIGRAM DAILY;
     Route: 048
     Dates: start: 201003
  10. DALTEPARIN [Concomitant]
     Active Substance: DALTEPARIN
     Indication: Thrombosis prophylaxis
     Dosage: 5000 IU (INTERNATIONAL UNIT) DAILY;
     Route: 058
     Dates: start: 20160802, end: 20160809
  11. DALTEPARIN [Concomitant]
     Active Substance: DALTEPARIN
     Indication: Thrombosis prophylaxis
  12. DENOSUMAB [Concomitant]
     Active Substance: DENOSUMAB
     Indication: Metastases to bone
     Dosage: 120 MG, (Q4W)
     Route: 058
     Dates: start: 20160323
  13. DENOSUMAB [Concomitant]
     Active Substance: DENOSUMAB
     Indication: Breast cancer metastatic
     Dosage: 120 MG
  14. DENOSUMAB [Concomitant]
     Active Substance: DENOSUMAB
     Indication: Breast cancer metastatic
     Dosage: 120 MG, QMO (120 MG Q28D)
     Route: 058
     Dates: start: 20160323
  15. DEXAMETHASONE [Concomitant]
     Active Substance: DEXAMETHASONE
     Indication: Metastases to bone
     Dosage: 6 MILLIGRAM, Q3W
     Route: 042
     Dates: start: 20191113
  16. DEXAMETHASONE [Concomitant]
     Active Substance: DEXAMETHASONE
     Indication: Breast cancer metastatic
     Dosage: 20 MILLIGRAM, Q3W
     Route: 042
     Dates: start: 20160324
  17. OMEPRAZOLE [Concomitant]
     Active Substance: OMEPRAZOLE
     Indication: Dyspepsia
     Dosage: 20 MILLIGRAM DAILY;
     Route: 048
     Dates: start: 20170727
  18. OMEPRAZOLE [Concomitant]
     Active Substance: OMEPRAZOLE
     Indication: Dyspepsia
  19. ACETAMINOPHEN [Concomitant]
     Active Substance: ACETAMINOPHEN
     Indication: Product used for unknown indication
     Route: 065

REACTIONS (8)
  - Infection [Recovered/Resolved]
  - Atrial thrombosis [Recovered/Resolved]
  - Musculoskeletal stiffness [Recovered/Resolved]
  - Joint stiffness [Recovered/Resolved]
  - Atrophic vulvovaginitis [Recovered/Resolved]
  - Influenza like illness [Recovered/Resolved]
  - Fatigue [Recovered/Resolved]
  - Diarrhoea [Not Recovered/Not Resolved]

NARRATIVE: CASE EVENT DATE: 20160324
